FAERS Safety Report 7771842-X (Version None)
Quarter: 2011Q3

REPORT INFORMATION
  Report Type: 
  Country: None (occurrence: None)
  Receive Date: 20110922
  Receipt Date: 20110418
  Transmission Date: 20111222
  Serious: No
  Sender: FDA-Public Use
  Company Number: US-ASTRAZENECA-2009SE09752

PATIENT
  Age: 52 Year
  Sex: Female
  Weight: 72.6 kg

DRUGS (4)
  1. SEROQUEL [Suspect]
     Indication: SLEEP DISORDER
     Route: 048
     Dates: start: 20050101, end: 20070501
  2. DIAZEPAM [Concomitant]
     Dates: start: 20060101
  3. LORAZEPAM [Concomitant]
     Dosage: 0.25 TO 1 MG
     Dates: start: 20050101
  4. AMITRIPTYLINE HCL [Concomitant]
     Dates: start: 20070101

REACTIONS (2)
  - SPINAL DISORDER [None]
  - TYPE 2 DIABETES MELLITUS [None]
